FAERS Safety Report 7632648-5 (Version None)
Quarter: 2011Q3

REPORT INFORMATION
  Report Type: 
  Country: None (occurrence: None)
  Receive Date: 20110725
  Receipt Date: 20101210
  Transmission Date: 20111222
  Serious: Yes (Other)
  Sender: FDA-Public Use
  Company Number: US-BRISTOL-MYERS SQUIBB COMPANY-15377492

PATIENT
  Age: 46 Year
  Sex: Female
  Weight: 104 kg

DRUGS (3)
  1. WARFARIN SODIUM [Suspect]
  2. COUMADIN [Suspect]
  3. LOVENOX [Suspect]

REACTIONS (2)
  - INTERNATIONAL NORMALISED RATIO ABNORMAL [None]
  - FEELING ABNORMAL [None]
